FAERS Safety Report 7579003-4 (Version None)
Quarter: 2011Q2

REPORT INFORMATION
  Report Type: 
  Country: None (occurrence: None)
  Receive Date: 20110628
  Receipt Date: 20110620
  Transmission Date: 20111010
  Serious: Yes (Hospitalization)
  Sender: FDA-Public Use
  Company Number: US-BAYER-201040439NA

PATIENT
  Age: 43 Year
  Sex: Female

DRUGS (7)
  1. NAPROXEN (ALEVE) [Concomitant]
  2. PROPRANOLOL [Concomitant]
     Dosage: UNK
     Dates: start: 20000101
  3. YAZ [Suspect]
     Indication: PRODUCT USED FOR UNKNOWN INDICATION
     Dosage: UNK
     Dates: start: 20070723, end: 20070801
  4. PROVENTIL [Concomitant]
     Dosage: UNK
     Dates: start: 20000101
  5. OTHER ANALGESICS AND ANTIPYRETICS [Concomitant]
     Dosage: UNK
     Dates: start: 20000101
  6. ADVIL LIQUI-GELS [Concomitant]
     Dosage: UNK
     Dates: start: 20000101
  7. NSAID'S [Concomitant]

REACTIONS (2)
  - THROMBOSIS [None]
  - VENOUS THROMBOSIS LIMB [None]
